FAERS Safety Report 6819262-6 (Version None)
Quarter: 2010Q3

REPORT INFORMATION
  Report Type: 
  Country: None (occurrence: None)
  Receive Date: 20100707
  Receipt Date: 20100623
  Transmission Date: 20110219
  Serious: Yes (Hospitalization, Other)
  Sender: FDA-Public Use
  Company Number: US-ELI_LILLY_AND_COMPANY-US201006006901

PATIENT
  Age: 69 Year
  Sex: Female

DRUGS (5)
  1. FORTEO [Suspect]
     Indication: OSTEOPOROSIS
     Dosage: 20 UG, DAILY (1/D)
  2. SYNTHROID [Concomitant]
  3. FERROUS SULFATE [Concomitant]
  4. CALCIUM CARBONATE [Concomitant]
  5. VITAMIN D [Concomitant]

REACTIONS (1)
  - HIP ARTHROPLASTY [None]
